FAERS Safety Report 8595811-5 (Version None)
Quarter: 2012Q3

REPORT INFORMATION
  Report Type: 
  Country: None (occurrence: None)
  Receive Date: 20120815
  Receipt Date: 20120802
  Transmission Date: 20120928
  Serious: Yes (Other)
  Sender: FDA-Public Use
  Company Number: JP-ROCHE-1082459

PATIENT
  Age: 59 Year
  Sex: Female

DRUGS (5)
  1. CAPECITABINE [Concomitant]
  2. HERCEPTIN [Suspect]
     Route: 041
     Dates: start: 20090108, end: 20090416
  3. DOCETAXEL [Concomitant]
     Indication: BREAST CANCER
     Dosage: DOSAGE IS UNCERTAIN.
     Route: 065
  4. HERCEPTIN [Suspect]
     Indication: BREAST CANCER
     Route: 041
     Dates: start: 20081218, end: 20081218
  5. LAPATINIB [Concomitant]

REACTIONS (3)
  - METASTASES TO LIVER [None]
  - CARDIAC FAILURE [None]
  - METASTASES TO LUNG [None]
